FAERS Safety Report 11046714 (Version 1)
Quarter: 2015Q2

REPORT INFORMATION
  Report Type: Spontaneous
  Country: FR (occurrence: FR)
  Receive Date: 20150420
  Receipt Date: 20150420
  Transmission Date: 20150821
  Serious: Yes (Other)
  Sender: FDA-Public Use
  Company Number: FR-AMGEN-FRASP2015037345

PATIENT
  Age: 55 Year
  Sex: Female

DRUGS (1)
  1. ENBREL [Suspect]
     Active Substance: ETANERCEPT
     Indication: PRODUCT USED FOR UNKNOWN INDICATION
     Dosage: 50 MG, UNK
     Route: 065
     Dates: start: 20150319, end: 2015

REACTIONS (4)
  - Dermatitis allergic [Unknown]
  - Injection site plaque [Unknown]
  - Drug-induced liver injury [Unknown]
  - Urticaria [Unknown]

NARRATIVE: CASE EVENT DATE: 20150402
